FAERS Safety Report 4943596-3 (Version None)
Quarter: 2006Q1

REPORT INFORMATION
  Report Type: 
  Country: None (occurrence: None)
  Receive Date: 20060314
  Receipt Date: 20060306
  Transmission Date: 20060701
  Serious: Yes (Hospitalization, Other)
  Sender: FDA-Public Use
  Company Number: US-GILEAD-2006-0009297

PATIENT
  Age: 50 Year
  Sex: Female
  Weight: 55.842 kg

DRUGS (1)
  1. TRUVADA [Suspect]
     Indication: HIV INFECTION
     Dates: start: 20050210

REACTIONS (4)
  - CEREBROVASCULAR ACCIDENT [None]
  - DEHYDRATION [None]
  - VOMITING [None]
  - WEIGHT DECREASED [None]
